FAERS Safety Report 17931287 (Version 1)
Quarter: 2020Q2

REPORT INFORMATION
  Report Type: Spontaneous
  Country: FR (occurrence: FR)
  Receive Date: 20200623
  Receipt Date: 20200623
  Transmission Date: 20200714
  Serious: Yes (Hospitalization)
  Sender: FDA-Public Use
  Company Number: NVSC2020FR173270

PATIENT
  Age: 43 Year
  Sex: Male
  Weight: 65 kg

DRUGS (7)
  1. LOXAPINE. [Suspect]
     Active Substance: LOXAPINE
     Indication: TOXICITY TO VARIOUS AGENTS
     Dosage: 1 G, ONCE/SINGLE
     Route: 048
     Dates: start: 20200328, end: 20200328
  2. RISPERIDONE. [Suspect]
     Active Substance: RISPERIDONE
     Indication: TOXICITY TO VARIOUS AGENTS
     Dosage: 24 MG, ONCE/SINGLE
     Route: 048
     Dates: start: 20200328, end: 20200328
  3. SERTRALINE HYDROCHLORIDE. [Suspect]
     Active Substance: SERTRALINE HYDROCHLORIDE
     Indication: TOXICITY TO VARIOUS AGENTS
     Dosage: 600 MG, ONCE/SINGLE
     Route: 048
     Dates: start: 20200328, end: 20200328
  4. OXAZEPAM. [Suspect]
     Active Substance: OXAZEPAM
     Indication: TOXICITY TO VARIOUS AGENTS
     Dosage: 800 MG, ONCE/SINGLE
     Route: 048
     Dates: start: 20200328, end: 20200328
  5. PREGABALIN. [Suspect]
     Active Substance: PREGABALIN
     Indication: TOXICITY TO VARIOUS AGENTS
     Dosage: 800 MG, ONCE/SINGLE
     Route: 048
     Dates: start: 20200328, end: 20200328
  6. ZOPICLONE [Suspect]
     Active Substance: ZOPICLONE
     Indication: PRODUCT USED FOR UNKNOWN INDICATION
     Dosage: 30 MG, ONCE/SINGLE
     Route: 048
     Dates: start: 20200328, end: 20200328
  7. MACROGOL [Concomitant]
     Active Substance: POLYETHYLENE GLYCOLS
     Indication: TOXICITY TO VARIOUS AGENTS
     Dosage: 120 G, ONCE/SINGLE
     Route: 048
     Dates: start: 20200328, end: 20200328

REACTIONS (1)
  - Coma [Recovered/Resolved]

NARRATIVE: CASE EVENT DATE: 20200328
